FAERS Safety Report 5364963-2 (Version None)
Quarter: 2007Q2

REPORT INFORMATION
  Report Type: 
  Country: None (occurrence: None)
  Receive Date: 20070621
  Receipt Date: 20070607
  Transmission Date: 20071010
  Serious: Yes (Hospitalization, Other)
  Sender: FDA-Public Use
  Company Number: US-AMGEN-KDL224184

PATIENT
  Sex: Male

DRUGS (6)
  1. ENBREL [Suspect]
     Indication: PSORIATIC ARTHROPATHY
     Route: 058
     Dates: start: 20050401
  2. ENBREL [Suspect]
     Indication: PSORIASIS
  3. METHOTREXATE [Concomitant]
     Route: 048
     Dates: start: 20050101
  4. MAGNESIUM SULFATE [Concomitant]
  5. DOVONEX [Concomitant]
     Route: 061
  6. TESTOSTERONE [Concomitant]

REACTIONS (5)
  - CATARACT [None]
  - GRAND MAL CONVULSION [None]
  - PSORIASIS [None]
  - PSORIATIC ARTHROPATHY [None]
  - RETINAL DETACHMENT [None]
